FAERS Safety Report 21003515 (Version 1)
Quarter: 2022Q2

REPORT INFORMATION
  Report Type: Spontaneous
  Country: US (occurrence: None)
  Receive Date: 20220623
  Receipt Date: 20220623
  Transmission Date: 20220721
  Serious: Yes (Death)
  Sender: FDA-Public Use
  Company Number: None

PATIENT
  Age: 70 Year
  Sex: Female

DRUGS (1)
  1. PROGRAF [Suspect]
     Active Substance: TACROLIMUS
     Indication: Allogenic stem cell transplantation
     Dosage: FREQUENCY : DAILY;?
     Route: 048
     Dates: start: 20220429

REACTIONS (3)
  - Respiratory failure [None]
  - Pneumonia [None]
  - Acute myeloid leukaemia refractory [None]

NARRATIVE: CASE EVENT DATE: 20220621
